FAERS Safety Report 4700861-2 (Version None)
Quarter: 2005Q2

REPORT INFORMATION
  Report Type: 
  Country: None (occurrence: None)
  Receive Date: 20050628
  Receipt Date: 20031028
  Transmission Date: 20051028
  Serious: Yes (Hospitalization)
  Sender: FDA-Public Use
  Company Number: CA-SANOFI-SYNTHELABO-A01200305072

PATIENT
  Age: 57 Year
  Sex: Female

DRUGS (13)
  1. PLAVIX [Interacting]
     Indication: PROPHYLAXIS
     Route: 048
     Dates: start: 20030925, end: 20031016
  2. PLAVIX [Interacting]
     Indication: CORONARY ARTERIAL STENT INSERTION
     Route: 048
     Dates: start: 20030925, end: 20031016
  3. PLAVIX [Interacting]
     Indication: MYOCARDIAL INFARCTION
     Route: 048
     Dates: start: 20030925, end: 20031016
  4. CYCLOSPORINE [Interacting]
     Indication: HEART TRANSPLANT
     Route: 048
     Dates: start: 19890101, end: 20031017
  5. CYCLOSPORINE [Interacting]
     Route: 048
     Dates: start: 19890101, end: 20031017
  6. LIPITOR [Interacting]
     Indication: HYPERCHOLESTEROLAEMIA
     Route: 048
     Dates: end: 20031016
  7. LIPITOR [Interacting]
     Indication: MYOCARDIAL INFARCTION
     Route: 048
     Dates: end: 20031016
  8. APO-ALLOPURINOL [Suspect]
     Indication: GOUT
     Route: 048
     Dates: start: 19900301, end: 20031016
  9. LISINOPRIL [Concomitant]
     Indication: BLOOD PRESSURE INCREASED
     Route: 048
  10. FUROSEMIDE [Concomitant]
     Indication: DRUG USE FOR UNKNOWN INDICATION
     Route: 048
  11. PREDNISONE TAB [Concomitant]
     Indication: DRUG USE FOR UNKNOWN INDICATION
     Route: 065
  12. IMURAN [Concomitant]
     Indication: HEART TRANSPLANT
     Route: 048
  13. IMURAN [Concomitant]
     Route: 048

REACTIONS (2)
  - DRUG INTERACTION [None]
  - RHABDOMYOLYSIS [None]
